FAERS Safety Report 8304339 (Version 3)
Quarter: 2013Q1

REPORT INFORMATION
  Report Type: Spontaneous
  Country: JP (occurrence: JP)
  Receive Date: 20111221
  Receipt Date: 20130111
  Transmission Date: 20140127
  Serious: Yes (Death, Other)
  Sender: FDA-Public Use
  Company Number: JP-SANOFI-AVENTIS-2011SA080704

PATIENT
  Age: 67 Year
  Sex: Male
  Weight: 69 kg

DRUGS (18)
  1. TAXOTERE [Suspect]
     Indication: NON-SMALL CELL LUNG CANCER
     Dosage: 60 MG/M2
     Route: 042
     Dates: start: 20110928, end: 20110928
  2. TAXOTERE [Suspect]
     Indication: NON-SMALL CELL LUNG CANCER
     Dosage: 50 MG/M2
     Route: 042
     Dates: start: 20111020
  3. AVASTIN [Suspect]
     Indication: NON-SMALL CELL LUNG CANCER
     Dosage: 1065 MG
     Route: 041
     Dates: start: 20110421, end: 20110825
  4. AVASTIN [Suspect]
     Indication: NON-SMALL CELL LUNG CANCER
     Dosage: 1065 MG
     Route: 041
     Dates: start: 20110928, end: 20111020
  5. PROMAC /JPN/ [Concomitant]
     Dosage: DOSAGE: 75 G 2 TIMES/ DAY
     Dates: start: 201104, end: 20111114
  6. MAGLAX [Concomitant]
     Dosage: DOSAGE: 660G 3 TIMES/DAY
     Dates: start: 201104, end: 20111114
  7. DICLOFENAC [Concomitant]
     Dosage: DOSAGE : 37.5 G 2 TIMES / DAY
     Dates: start: 201104, end: 20111114
  8. FAMOTIDINE [Concomitant]
     Dosage: DOSAGE: 20 G 2 TIMES / DAY
     Dates: start: 201104, end: 20111114
  9. CARBOPLATIN [Concomitant]
     Route: 041
     Dates: start: 20110421, end: 20110704
  10. PEMETREXED [Concomitant]
     Route: 041
     Dates: start: 20110421, end: 20110704
  11. GLIMICRON [Concomitant]
     Route: 048
     Dates: start: 2008
  12. METFORMIN [Concomitant]
     Route: 048
     Dates: start: 2008
  13. ALLOPURINOL [Concomitant]
     Route: 048
  14. DEPAS [Concomitant]
     Route: 048
  15. LOXONIN [Concomitant]
     Dates: start: 201104
  16. MUCOSTA [Concomitant]
     Route: 048
     Dates: start: 201104
  17. MUCODYNE [Concomitant]
     Dates: start: 201104
  18. POLAPREZINC [Concomitant]
     Dates: start: 201104

REACTIONS (4)
  - Interstitial lung disease [Fatal]
  - Intestinal perforation [Not Recovered/Not Resolved]
  - Acute respiratory distress syndrome [Fatal]
  - Infection [Unknown]
